FAERS Safety Report 25739288 (Version 1)
Quarter: 2025Q3

REPORT INFORMATION
  Report Type: Report from Study
  Country: US (occurrence: US)
  Receive Date: 20250829
  Receipt Date: 20250829
  Transmission Date: 20251021
  Serious: Yes (Hospitalization, Other)
  Sender: SUNOVION
  Company Number: US-SMPA-2025SPA010911

PATIENT
  Age: 65 Year
  Sex: Male

DRUGS (3)
  1. ORGOVYX [Suspect]
     Active Substance: RELUGOLIX
     Indication: Prostate cancer
     Route: 048
  2. ORGOVYX [Suspect]
     Active Substance: RELUGOLIX
     Route: 048
  3. ORGOVYX [Suspect]
     Active Substance: RELUGOLIX
     Route: 048

REACTIONS (11)
  - Metastases to spine [Unknown]
  - Loss of consciousness [Unknown]
  - Metastases to gastrointestinal tract [Unknown]
  - Weight decreased [Unknown]
  - Renal disorder [Unknown]
  - Gait inability [Unknown]
  - Rash [Recovering/Resolving]
  - Decreased appetite [Unknown]
  - Nausea [Unknown]
  - Fatigue [Unknown]
  - Product use issue [Unknown]
